FAERS Safety Report 5058285-7 (Version None)
Quarter: 2006Q2

REPORT INFORMATION
  Report Type: 
  Country: None (occurrence: None)
  Receive Date: 20060627
  Receipt Date: 20051130
  Transmission Date: 20061013
  Serious: Yes (Life-Threatening)
  Sender: FDA-Public Use
  Company Number: 427181

PATIENT
  Age: 75 Year
  Sex: Male
  Weight: 83 kg

DRUGS (13)
  1. XELODA [Suspect]
     Indication: COLON CANCER
     Dosage: 1800 MG 2 PER DAY ORAL
     Route: 048
     Dates: start: 20051004, end: 20051008
  2. PRILOSEC [Concomitant]
  3. PLAVIX [Concomitant]
  4. SIMVASTATIN [Concomitant]
  5. ZOLPIDEM TARTRATE [Concomitant]
  6. IMDUR [Concomitant]
  7. NORVASC [Concomitant]
  8. LISINOPRIL [Concomitant]
  9. LORATADINE [Concomitant]
  10. METFORMIN [Concomitant]
  11. PAXIL [Concomitant]
  12. ATENOLOL [Concomitant]
  13. LORAZEPAM [Concomitant]

REACTIONS (1)
  - MYOCARDIAL INFARCTION [None]
